FAERS Safety Report 8596113 (Version 6)
Quarter: 2012Q4

REPORT INFORMATION
  Report Type: 
  Country: US (occurrence: US)
  Receive Date: 20120605
  Receipt Date: 20120918
  Transmission Date: 20130627
  Serious: No
  Sender: FDA-Public Use
  Company Number: US-PFIZER INC-2012132679

PATIENT
  Age: 52 Year
  Sex: Female
  Weight: 96.15 kg

DRUGS (13)
  1. SUTENT [Suspect]
     Indication: PANCREATIC CARCINOMA
     Dosage: 12.5 mg, 3x/day
     Dates: start: 20120428, end: 20120613
  2. SUTENT [Suspect]
     Indication: HEPATIC NEOPLASM MALIGNANT
     Dosage: 12.5 mg, 3x/day
     Dates: start: 20120618, end: 20120701
  3. SUTENT [Suspect]
     Indication: PANCREATIC NEUROENDOCRINE TUMOUR
     Dosage: UNK
     Dates: start: 20120704
  4. INSULIN [Concomitant]
     Indication: DIABETES MELLITUS
     Dosage: UNK
  5. LEXAPRO [Concomitant]
     Indication: DEPRESSION
     Dosage: 40 mg, Daily
  6. LEXAPRO [Concomitant]
     Indication: ANXIETY
  7. SEROQUEL [Concomitant]
     Indication: DEPRESSION
     Dosage: 200 mg, Daily
  8. SEROQUEL [Concomitant]
     Indication: ANXIETY
  9. LIPITOR [Concomitant]
     Indication: BLOOD CHOLESTEROL INCREASED
     Dosage: 40 mg, at evening
  10. LISINOPRIL [Concomitant]
     Dosage: 20 mg, Daily
  11. TRAZODONE [Concomitant]
     Indication: SLEEP DISORDER
     Dosage: 5 mg, as needed
  12. ZANTAC [Concomitant]
     Indication: DYSPEPSIA
     Dosage: 150 mg, as needed
  13. CELEXA [Concomitant]
     Dosage: UNK

REACTIONS (18)
  - Glossodynia [Not Recovered/Not Resolved]
  - Oral pain [Recovered/Resolved]
  - Stomatitis [Unknown]
  - Oral herpes [Unknown]
  - Weight decreased [Unknown]
  - Glossodynia [Not Recovered/Not Resolved]
  - Skin lesion [Unknown]
  - Hair colour changes [Unknown]
  - Exostosis [Unknown]
  - Plantar erythema [Unknown]
  - Lacrimation increased [Unknown]
  - Blood potassium decreased [Unknown]
  - Abdominal distension [Unknown]
  - Muscle spasms [Recovered/Resolved]
  - Pain in extremity [Recovered/Resolved]
  - Blood potassium increased [Unknown]
  - Hypersomnia [Unknown]
  - Fatigue [Unknown]
